FAERS Safety Report 11258350 (Version 3)
Quarter: 2016Q1

REPORT INFORMATION
  Report Type: Spontaneous
  Country: US (occurrence: US)
  Receive Date: 20150710
  Receipt Date: 20160113
  Transmission Date: 20160525
  Serious: Yes (Other)
  Sender: FDA-Public Use
  Company Number: US-009507513-1507USA003696

PATIENT
  Sex: Male

DRUGS (2)
  1. LIPITOR [Concomitant]
     Active Substance: ATORVASTATIN CALCIUM
     Indication: BLOOD TRIGLYCERIDES INCREASED
     Dosage: UNK, UNKNOWN
     Route: 065
     Dates: start: 2006, end: 2007
  2. PROPECIA [Suspect]
     Active Substance: FINASTERIDE
     Indication: ALOPECIA
     Dosage: 1 MG, UNKNOWN
     Route: 048
     Dates: start: 200604, end: 201006

REACTIONS (9)
  - Breast pain [Not Recovered/Not Resolved]
  - Breast enlargement [Not Recovered/Not Resolved]
  - Libido decreased [Not Recovered/Not Resolved]
  - Semen volume decreased [Unknown]
  - Basal cell carcinoma [Unknown]
  - Cartilage injury [Unknown]
  - Erectile dysfunction [Not Recovered/Not Resolved]
  - Sexual dysfunction [Not Recovered/Not Resolved]
  - Nipple pain [Not Recovered/Not Resolved]

NARRATIVE: CASE EVENT DATE: 200609
